FAERS Safety Report 21425432 (Version 1)
Quarter: 2022Q4

REPORT INFORMATION
  Report Type: Report from Study
  Country: US (occurrence: US)
  Receive Date: 20221008
  Receipt Date: 20221008
  Transmission Date: 20230113
  Serious: No
  Sender: FDA-Public Use
  Company Number: US-ABBVIE-4145049

PATIENT
  Age: 34 Year
  Sex: Female

DRUGS (5)
  1. SKYRIZI [Suspect]
     Active Substance: RISANKIZUMAB-RZAA
     Indication: Crohn^s disease
     Route: 058
     Dates: start: 20220908
  2. Covid vaccine [Concomitant]
     Indication: COVID-19 immunisation
     Dosage: FIRST DOSE?ONCE
     Route: 030
  3. Covid vaccine [Concomitant]
     Indication: COVID-19 immunisation
     Dosage: SECOND DOSE?ONCE
     Route: 030
  4. Moderna Covid Booster vaccine [Concomitant]
     Indication: COVID-19 immunisation
     Dosage: BOOSTER DOSE?ONCE
     Route: 030
  5. SKYRIZI [Suspect]
     Active Substance: RISANKIZUMAB-RZAA

REACTIONS (1)
  - Fatigue [Recovering/Resolving]

NARRATIVE: CASE EVENT DATE: 20220901
